FAERS Safety Report 9290494 (Version 11)
Quarter: 2016Q1

REPORT INFORMATION
  Report Type: Report from Study
  Country: CA (occurrence: CA)
  Receive Date: 20130515
  Receipt Date: 20160323
  Transmission Date: 20160526
  Serious: Yes (Other)
  Sender: FDA-Public Use
  Company Number: CA-ROCHE-1190976

PATIENT
  Age: 26 Year
  Sex: Female
  Weight: 90 kg

DRUGS (6)
  1. PREDNISONE. [Concomitant]
     Active Substance: PREDNISONE
  2. DEXILANT [Concomitant]
     Active Substance: DEXLANSOPRAZOLE
  3. ACTEMRA [Suspect]
     Active Substance: TOCILIZUMAB
     Route: 042
     Dates: start: 20140703
  4. ACTEMRA [Suspect]
     Active Substance: TOCILIZUMAB
     Route: 042
     Dates: start: 20150828
  5. ACTEMRA [Suspect]
     Active Substance: TOCILIZUMAB
     Indication: JUVENILE IDIOPATHIC ARTHRITIS
     Route: 042
     Dates: start: 20121107
  6. RIVOTRIL [Concomitant]
     Active Substance: CLONAZEPAM

REACTIONS (13)
  - Clostridium difficile infection [Unknown]
  - Sinusitis [Unknown]
  - Anxiety [Unknown]
  - Weight increased [Unknown]
  - Clostridium difficile infection [Not Recovered/Not Resolved]
  - Urinary tract infection [Unknown]
  - Weight increased [Not Recovered/Not Resolved]
  - Abdominal pain [Unknown]
  - Nasopharyngitis [Recovering/Resolving]
  - Irritable bowel syndrome [Not Recovered/Not Resolved]
  - Mobility decreased [Not Recovered/Not Resolved]
  - Arthropathy [Unknown]
  - Joint swelling [Recovering/Resolving]

NARRATIVE: CASE EVENT DATE: 2013
